FAERS Safety Report 10564926 (Version 2)
Quarter: 2016Q1

REPORT INFORMATION
  Report Type: Spontaneous
  Country: NO (occurrence: NO)
  Receive Date: 20141105
  Receipt Date: 20160203
  Transmission Date: 20160525
  Serious: Yes (Death, Other)
  Sender: FDA-Public Use
  Company Number: NO-BRISTOL-MYERS SQUIBB COMPANY-21537980

PATIENT
  Age: 90 Year
  Sex: Female

DRUGS (5)
  1. BURINEX [Concomitant]
     Active Substance: BUMETANIDE
     Indication: CARDIAC FAILURE CONGESTIVE
     Dosage: 1 MG, BID
     Route: 048
     Dates: start: 201409
  2. NYCOPLUS CALCIGRAN [Concomitant]
     Indication: PRODUCT USED FOR UNKNOWN INDICATION
     Dosage: .4 MG, QD
     Route: 048
     Dates: start: 201409
  3. METOPROLOL. [Concomitant]
     Active Substance: METOPROLOL
     Indication: CARDIAC FAILURE CONGESTIVE
     Dosage: 50 MG, QD
     Route: 048
     Dates: start: 201409
  4. ELIQUIS [Suspect]
     Active Substance: APIXABAN
     Indication: PRODUCT USED FOR UNKNOWN INDICATION
     Dosage: 2.5 MG, INTERMITTENT
     Route: 048
     Dates: start: 201409
  5. PARACET [Concomitant]
     Active Substance: ACETAMINOPHEN
     Indication: PRODUCT USED FOR UNKNOWN INDICATION
     Dosage: 500 MG, INTERMITTENT
     Route: 048

REACTIONS (2)
  - Off label use [Unknown]
  - Sudden death [Fatal]

NARRATIVE: CASE EVENT DATE: 20141007
